FAERS Safety Report 9374500 (Version 3)
Quarter: 2013Q3

REPORT INFORMATION
  Report Type: Spontaneous
  Country: JP (occurrence: JP)
  Receive Date: 20130628
  Receipt Date: 20130726
  Transmission Date: 20140515
  Serious: Yes (Death)
  Sender: FDA-Public Use
  Company Number: JP-ROCHE-1242683

PATIENT
  Age: 19 Year
  Sex: Male

DRUGS (2)
  1. ACTEMRA [Suspect]
     Indication: GRAFT VERSUS HOST DISEASE IN SKIN
     Route: 041
     Dates: start: 20130611, end: 20130611
  2. ACTEMRA [Suspect]
     Indication: OFF LABEL USE

REACTIONS (1)
  - Acute respiratory distress syndrome [Fatal]
